FAERS Safety Report 4726064-3 (Version None)
Quarter: 2005Q3

REPORT INFORMATION
  Report Type: 
  Country: None (occurrence: None)
  Receive Date: 20050726
  Receipt Date: 20050726
  Transmission Date: 20060218
  Serious: Yes (Life-Threatening, Hospitalization, Disabling)
  Sender: FDA-Public Use
  Company Number: None

PATIENT
  Age: 11 Year
  Sex: Male

DRUGS (16)
  1. ADDERALL XR 15 [Suspect]
     Indication: ATTENTION DEFICIT/HYPERACTIVITY DISORDER
     Dosage: 20MG Q DAY ORAL
     Route: 048
     Dates: start: 19970415, end: 20020315
  2. PAXIL [Suspect]
     Indication: MAJOR DEPRESSION
     Dosage: 20MG Q DAY ORAL
     Route: 048
     Dates: start: 20011205, end: 20020715
  3. ADDERALL XR 15 [Concomitant]
  4. ZYPREXA [Concomitant]
  5. PAXIL [Concomitant]
  6. LITHIUM [Concomitant]
  7. DEPAKOTE [Concomitant]
  8. ZYPREXA [Concomitant]
  9. GEODON [Concomitant]
  10. TRILEPTAL [Concomitant]
  11. CLONIDINE [Concomitant]
  12. KLONIPIN [Concomitant]
  13. AMBIEN [Concomitant]
  14. STRATTERA [Concomitant]
  15. REMERON [Concomitant]
  16. ABILIFY [Concomitant]

REACTIONS (7)
  - BIPOLAR DISORDER [None]
  - DEPRESSION [None]
  - HALLUCINATION, AUDITORY [None]
  - HOMICIDAL IDEATION [None]
  - MANIA [None]
  - PSYCHOTIC DISORDER [None]
  - SUICIDAL IDEATION [None]
